FAERS Safety Report 11215950 (Version 1)
Quarter: 2015Q2

REPORT INFORMATION
  Report Type: Spontaneous
  Country: US (occurrence: US)
  Receive Date: 20150624
  Receipt Date: 20150624
  Transmission Date: 20150821
  Serious: Yes (Other)
  Sender: FDA-Public Use
  Company Number: US-PFIZER INC-2015206200

PATIENT
  Age: 58 Year
  Sex: Male

DRUGS (10)
  1. PENTAZOCINE [Concomitant]
     Active Substance: PENTAZOCINE
     Indication: SEDATION
     Dosage: 8 MG, UNK
  2. LIDOCAINE HYDROCHLORIDE. [Concomitant]
     Active Substance: LIDOCAINE HYDROCHLORIDE
     Dosage: 8 CC 1/2
     Route: 065
  3. DYAZIDE [Concomitant]
     Active Substance: HYDROCHLOROTHIAZIDE\TRIAMTERENE
     Indication: HYPERTENSION
     Dosage: 50 MG, 1X/DAY
  4. PROPANOLOL HCL [Suspect]
     Active Substance: PROPRANOLOL HYDROCHLORIDE
     Indication: HYPERTENSION
     Dosage: 20 MG, 3X/DAY
     Route: 065
  5. MEPERIDINE [Concomitant]
     Active Substance: MEPERIDINE
     Indication: SEDATION
     Dosage: 80 MG, UNK
  6. METHOHEXITAL [Concomitant]
     Active Substance: METHOHEXITAL
     Dosage: 90 MG
     Route: 042
  7. EPINEPHRINE. [Interacting]
     Active Substance: EPINEPHRINE
     Dosage: 1:200,000
     Route: 065
  8. LORAZEPAM. [Concomitant]
     Active Substance: LORAZEPAM
     Dosage: 1 MG, UNK
     Route: 060
  9. HYDROXYZINE [Concomitant]
     Active Substance: HYDROXYZINE\HYDROXYZINE HYDROCHLORIDE
     Dosage: 25 MG, UNK
     Route: 030
  10. DIAZEPAM. [Concomitant]
     Active Substance: DIAZEPAM
     Indication: SEDATION
     Dosage: 12.5 MG, UNK
     Route: 042

REACTIONS (3)
  - Drug interaction [Unknown]
  - Blood pressure increased [Unknown]
  - Bradycardia [Unknown]
